FAERS Safety Report 13029780 (Version 3)
Quarter: 2017Q1

REPORT INFORMATION
  Report Type: Spontaneous
  Country: FR (occurrence: FR)
  Receive Date: 20161215
  Receipt Date: 20170324
  Transmission Date: 20170428
  Serious: Yes (Hospitalization)
  Sender: FDA-Public Use
  Company Number: FR-ROCHE-1867358

PATIENT
  Age: 50 Year
  Sex: Female

DRUGS (14)
  1. PROGRAF [Concomitant]
     Active Substance: TACROLIMUS\TACROLIMUS ANHYDROUS
     Indication: PROPHYLAXIS AGAINST TRANSPLANT REJECTION
     Dosage: ONGOING
     Route: 048
     Dates: start: 20161109
  2. AMLODIPINE [Suspect]
     Active Substance: AMLODIPINE BESYLATE
     Indication: HYPERTENSION
     Route: 048
     Dates: start: 20161111, end: 20161117
  3. TAHOR [Suspect]
     Active Substance: ATORVASTATIN CALCIUM
     Indication: CARDIOVASCULAR EVENT PROPHYLAXIS
     Route: 048
     Dates: start: 20161112, end: 20161114
  4. CORTANCYL [Concomitant]
     Active Substance: PREDNISONE
     Indication: PROPHYLAXIS AGAINST TRANSPLANT REJECTION
     Dosage: ONGOING
     Route: 048
     Dates: start: 20161109
  5. ROVALCYTE [Suspect]
     Active Substance: VALGANCICLOVIR HYDROCHLORIDE
     Indication: ANTIVIRAL PROPHYLAXIS
     Route: 048
     Dates: start: 20161112, end: 20161121
  6. DOLIPRANE [Suspect]
     Active Substance: ACETAMINOPHEN
     Indication: PAIN
     Dosage: 1000 MG
     Route: 048
     Dates: start: 20161111, end: 20161114
  7. FUNGIZONE [Concomitant]
     Active Substance: AMPHOTERICIN B
     Route: 065
     Dates: start: 20161108, end: 20161109
  8. INEXIUM [Concomitant]
     Active Substance: ESOMEPRAZOLE
     Dosage: 20 MG
     Route: 048
     Dates: start: 20161109
  9. LEVOTHYROX [Concomitant]
     Active Substance: LEVOTHYROXINE
     Indication: HYPOTHYROIDISM
     Dosage: LEVOTHYROX 100 MICRO G 1-0-0
     Route: 048
  10. BACTRIM [Suspect]
     Active Substance: SULFAMETHOXAZOLE\TRIMETHOPRIM
     Indication: OPPORTUNISTIC INFECTION PROPHYLAXIS
     Route: 048
     Dates: start: 20161115, end: 20161117
  11. SIMULECT [Suspect]
     Active Substance: BASILIXIMAB
     Indication: PROPHYLAXIS AGAINST TRANSPLANT REJECTION
     Dosage: 20 MG
     Route: 042
     Dates: start: 20161112, end: 20161112
  12. FUNGIZONE [Concomitant]
     Active Substance: AMPHOTERICIN B
     Dosage: 20 MG
     Route: 048
     Dates: start: 20161109
  13. CALCIPARINE [Concomitant]
     Active Substance: HEPARIN CALCIUM
     Route: 058
     Dates: start: 20161109, end: 20161125
  14. MYFORTIC [Concomitant]
     Active Substance: MYCOPHENOLATE SODIUM
     Indication: PROPHYLAXIS AGAINST TRANSPLANT REJECTION
     Dosage: ONGOING
     Route: 048
     Dates: start: 20161109

REACTIONS (2)
  - Gamma-glutamyltransferase increased [Recovering/Resolving]
  - Alanine aminotransferase increased [Recovered/Resolved]

NARRATIVE: CASE EVENT DATE: 20161115
